FAERS Safety Report 10084915 (Version 3)
Quarter: 2014Q4

REPORT INFORMATION
  Report Type: Spontaneous
  Country: US (occurrence: US)
  Receive Date: 20140417
  Receipt Date: 20141119
  Transmission Date: 20150528
  Serious: No
  Sender: FDA-Public Use
  Company Number: US-009507513-1404USA006954

PATIENT
  Sex: Male

DRUGS (1)
  1. PROPECIA [Suspect]
     Active Substance: FINASTERIDE
     Indication: ALOPECIA
     Dosage: 1 MG, QD
     Route: 048
     Dates: start: 20070131, end: 20110829

REACTIONS (10)
  - Rash [Unknown]
  - Erectile dysfunction [Unknown]
  - Loss of libido [Unknown]
  - Depression [Unknown]
  - Testicular pain [Unknown]
  - Breast pain [Unknown]
  - Sexual dysfunction [Not Recovered/Not Resolved]
  - Pseudofolliculitis barbae [Not Recovered/Not Resolved]
  - Cognitive disorder [Not Recovered/Not Resolved]
  - Semen volume decreased [Unknown]

NARRATIVE: CASE EVENT DATE: 20090601
